FAERS Safety Report 4313368-1 (Version None)
Quarter: 2004Q1

REPORT INFORMATION
  Report Type: 
  Country: None (occurrence: None)
  Receive Date: 20040304
  Receipt Date: 20040217
  Transmission Date: 20041129
  Serious: Yes (Hospitalization, Other)
  Sender: FDA-Public Use
  Company Number: USA031152993

PATIENT
  Age: 20 Year
  Sex: Male

DRUGS (2)
  1. STRATTERA [Suspect]
     Indication: DEPRESSION
     Dosage: 40 MG/DAY
     Dates: start: 20031101
  2. ZOLOFT [Concomitant]

REACTIONS (2)
  - BIPOLAR I DISORDER [None]
  - HYPOMANIA [None]
